FAERS Safety Report 13026115 (Version 1)
Quarter: 2016Q4

REPORT INFORMATION
  Report Type: Spontaneous
  Country: US (occurrence: US)
  Receive Date: 20161214
  Receipt Date: 20161214
  Transmission Date: 20170207
  Serious: No
  Sender: FDA-Public Use
  Company Number: US-JNJFOC-20150713726

PATIENT
  Sex: Male

DRUGS (6)
  1. RISPERDAL [Suspect]
     Active Substance: RISPERIDONE
     Indication: SCHIZOPHRENIA
     Route: 048
     Dates: start: 200401, end: 200512
  2. RISPERDAL [Suspect]
     Active Substance: RISPERIDONE
     Indication: SCHIZOPHRENIA
     Route: 048
     Dates: start: 199801, end: 200912
  3. INVEGA [Suspect]
     Active Substance: PALIPERIDONE
     Indication: SCHIZOPHRENIA
     Route: 048
     Dates: start: 200601, end: 200912
  4. RISPERDAL [Suspect]
     Active Substance: RISPERIDONE
     Indication: SCHIZOPHRENIA
     Route: 048
     Dates: start: 20090101, end: 20091231
  5. RISPERDAL [Suspect]
     Active Substance: RISPERIDONE
     Indication: SCHIZOPHRENIA
     Route: 048
     Dates: start: 200501, end: 200612
  6. RISPERDAL [Suspect]
     Active Substance: RISPERIDONE
     Indication: SCHIZOPHRENIA
     Route: 048
     Dates: start: 200601, end: 200912

REACTIONS (5)
  - Skin striae [Unknown]
  - Gynaecomastia [Unknown]
  - Abnormal weight gain [Unknown]
  - Hyperglycaemia [Unknown]
  - Extrapyramidal disorder [Unknown]

NARRATIVE: CASE EVENT DATE: 2003
